FAERS Safety Report 14334124 (Version 1)
Quarter: 2017Q4

REPORT INFORMATION
  Report Type: Spontaneous
  Country: HU (occurrence: HU)
  Receive Date: 20171228
  Receipt Date: 20171228
  Transmission Date: 20180321
  Serious: Yes (Death, Hospitalization)
  Sender: FDA-Public Use
  Company Number: HU-TEVA-2017-HU-835401

PATIENT
  Age: 67 Year
  Sex: Female
  Weight: 89 kg

DRUGS (10)
  1. TALLITON [Concomitant]
     Active Substance: CARVEDILOL
     Indication: HYPERTENSION
     Dosage: 6.25 MG, 2X/DAY
     Route: 048
     Dates: start: 201706
  2. NOACID /01263204/ [Concomitant]
     Indication: PROPHYLAXIS
     Dosage: 40 MG, DAILY
     Route: 048
     Dates: start: 200706
  3. FURON /00032601/ [Concomitant]
     Active Substance: FUROSEMIDE
     Indication: HYPERTENSION
     Dosage: 40 MG, DAILY
     Route: 048
     Dates: start: 2003
  4. KALDYUM [Concomitant]
     Active Substance: POTASSIUM CHLORIDE
     Indication: HYPERTENSION
     Dosage: 600 MG, 3X/DAY
     Route: 048
     Dates: start: 2003
  5. PACLITAXEL. [Suspect]
     Active Substance: PACLITAXEL
     Indication: NEOPLASM MALIGNANT
     Dosage: UNK
     Route: 065
  6. PACLITAXEL. [Suspect]
     Active Substance: PACLITAXEL
     Dosage: 327 MG, CYCLIC (EVERY 21 DAYS)
     Route: 042
     Dates: start: 20170911
  7. CARBOPLATIN. [Suspect]
     Active Substance: CARBOPLATIN
     Dosage: UNK
     Route: 065
  8. CARBOPLATIN. [Suspect]
     Active Substance: CARBOPLATIN
     Indication: NEOPLASM MALIGNANT
     Dosage: 900 MG, CYCLIC (EVERY 21 DAYS)
     Route: 042
     Dates: start: 20170911
  9. DIALOSA [Concomitant]
     Indication: TYPE 2 DIABETES MELLITUS
     Dosage: 3 MG, 2X/DAY
     Route: 048
     Dates: start: 2008
  10. SORBIFER /00023503/ [Concomitant]
     Active Substance: FERROUS SULFATE
     Indication: ANAEMIA
     Dosage: 320 MG, 2X/DAY
     Route: 048
     Dates: start: 201706

REACTIONS (2)
  - Neutropenia [Fatal]
  - Neoplasm progression [Fatal]

NARRATIVE: CASE EVENT DATE: 20170917
